FAERS Safety Report 18154220 (Version 1)
Quarter: 2020Q3

REPORT INFORMATION
  Report Type: Other
  Country: US (occurrence: US)
  Receive Date: 20200816
  Receipt Date: 20200816
  Transmission Date: 20201103
  Serious: Yes (Hospitalization)
  Sender: FDA-Public Use
  Company Number: US-ROCHE-2658399

PATIENT
  Sex: Female

DRUGS (4)
  1. XOLAIR [Suspect]
     Active Substance: OMALIZUMAB
     Indication: RHEUMATOID ARTHRITIS
  2. XOLAIR [Suspect]
     Active Substance: OMALIZUMAB
     Indication: IDIOPATHIC URTICARIA
     Route: 058
  3. RITUXAN [Suspect]
     Active Substance: RITUXIMAB
     Indication: IDIOPATHIC URTICARIA
     Dosage: INFUSE 1000MG INTRAVENOUSLY ON DAY(S) 0 AND DAY(S) 15 EVERY 6 MONTH(S)
     Route: 041
  4. RITUXAN [Suspect]
     Active Substance: RITUXIMAB
     Indication: RHEUMATOID ARTHRITIS

REACTIONS (1)
  - COVID-19 [Unknown]
